FAERS Safety Report 4827537-5 (Version None)
Quarter: 2005Q4

REPORT INFORMATION
  Report Type: 
  Country: None (occurrence: None)
  Receive Date: 20051114
  Receipt Date: 20051102
  Transmission Date: 20060501
  Serious: Yes (Life-Threatening, Hospitalization)
  Sender: FDA-Public Use
  Company Number: CH-BRISTOL-MYERS SQUIBB COMPANY-13169669

PATIENT
  Age: 49 Year
  Sex: Male

DRUGS (3)
  1. ERBITUX [Suspect]
     Indication: COLON CANCER
     Route: 042
     Dates: start: 20051001, end: 20051001
  2. ERBITUX [Suspect]
     Route: 042
     Dates: start: 20051001, end: 20051001
  3. CAMPTOSAR [Suspect]
     Indication: COLON CANCER
     Route: 042
     Dates: start: 20051001, end: 20051001

REACTIONS (3)
  - BILIARY DILATATION [None]
  - JAUNDICE [None]
  - OVERDOSE [None]
